FAERS Safety Report 5560927-4 (Version None)
Quarter: 2007Q4

REPORT INFORMATION
  Report Type: 
  Country: None (occurrence: None)
  Receive Date: 20071215
  Receipt Date: 20071128
  Transmission Date: 20080405
  Serious: No
  Sender: FDA-Public Use
  Company Number: US-ABBOTT-07P-163-0426762-00

PATIENT
  Sex: Female
  Weight: 54.48 kg

DRUGS (3)
  1. HUMIRA [Suspect]
     Indication: CROHN'S DISEASE
     Route: 058
     Dates: start: 20071107
  2. VALACYCLOVIR HCL [Concomitant]
     Indication: HERPES VIRUS INFECTION
     Route: 048
     Dates: start: 20070801
  3. MESALAMINE [Concomitant]
     Indication: CROHN'S DISEASE
     Route: 048
     Dates: start: 19970101

REACTIONS (2)
  - DIZZINESS [None]
  - MUSCULAR WEAKNESS [None]
